FAERS Safety Report 4302775-9 (Version None)
Quarter: 2004Q1

REPORT INFORMATION
  Report Type: 
  Country: None (occurrence: None)
  Receive Date: 20040224
  Receipt Date: 20040212
  Transmission Date: 20041129
  Serious: Yes (Other)
  Sender: FDA-Public Use
  Company Number: PHBS2004JP02291

PATIENT
  Age: 54 Year
  Sex: Female

DRUGS (1)
  1. NEORAL [Suspect]
     Indication: PSORIASIS
     Dosage: 150 MG/D
     Route: 048
     Dates: start: 20031007, end: 20040112

REACTIONS (3)
  - CEREBELLAR ATAXIA [None]
  - DRUG LEVEL DECREASED [None]
  - HEADACHE [None]
